FAERS Safety Report 7261701-3 (Version None)
Quarter: 2011Q1

REPORT INFORMATION
  Report Type: 
  Country: None (occurrence: None)
  Receive Date: 20110130
  Receipt Date: 20101022
  Transmission Date: 20110831
  Serious: No
  Sender: FDA-Public Use
  Company Number: US-ABBOTT-10P-163-0680946-00

PATIENT
  Age: 58 Year
  Sex: Female

DRUGS (7)
  1. ZOLOFT [Concomitant]
     Indication: PANIC ATTACK
  2. HUMIRA [Suspect]
  3. HUMIRA [Suspect]
     Indication: PSORIASIS
     Dates: start: 20101022, end: 20101022
  4. ALLEVE [Concomitant]
     Indication: HEADACHE
  5. SEROQUEL [Concomitant]
     Indication: DEPRESSION
  6. ZOLOFT [Concomitant]
     Indication: ANXIETY
  7. SEROQUEL [Concomitant]
     Indication: ANXIETY

REACTIONS (2)
  - PANIC ATTACK [None]
  - EYE SWELLING [None]
